FAERS Safety Report 7511232-8 (Version None)
Quarter: 2011Q2

REPORT INFORMATION
  Report Type: 
  Country: None (occurrence: None)
  Receive Date: 20110531
  Receipt Date: 20110525
  Transmission Date: 20111010
  Serious: Yes (Death, Hospitalization, Other)
  Sender: FDA-Public Use
  Company Number: PHHY2010MX76040

PATIENT
  Sex: Female

DRUGS (4)
  1. DIOVAN [Suspect]
     Indication: HYPERTENSION
     Dosage: 80 MG DAILY
     Dates: start: 20050101
  2. GALANTAMINE HYDROBROMIDE [Concomitant]
  3. EXELON [Suspect]
     Dosage: 1 PATCH OF 10 CM2 (9.5 MG)
     Route: 062
     Dates: start: 20100301
  4. EXELON [Suspect]
     Indication: DEMENTIA ALZHEIMER'S TYPE
     Dosage: 1 PATCH OF 5 CM2 (4.6 MG) PER DAY
     Route: 062
     Dates: start: 20100101

REACTIONS (5)
  - MULTI-ORGAN FAILURE [None]
  - APHAGIA [None]
  - DISEASE PROGRESSION [None]
  - MEMORY IMPAIRMENT [None]
  - DYSPHAGIA [None]
